FAERS Safety Report 10705074 (Version 1)
Quarter: 2015Q1

REPORT INFORMATION
  Report Type: Spontaneous
  Country: US (occurrence: None)
  Receive Date: 20150108
  Receipt Date: 20150108
  Transmission Date: 20150721
  Serious: Yes (Other)
  Sender: FDA-Public Use
  Company Number: 2014-US-017326

PATIENT
  Sex: Female

DRUGS (17)
  1. KLOR-CON M20 (POTASSIUM CHLORIDE) [Concomitant]
  2. METOPROLOL TARTRATE. [Concomitant]
     Active Substance: METOPROLOL TARTRATE
  3. LASIX [Concomitant]
     Active Substance: FUROSEMIDE
  4. FOSAMAX [Concomitant]
     Active Substance: ALENDRONATE SODIUM
  5. FOLIC ACID. [Concomitant]
     Active Substance: FOLIC ACID
  6. SYNTHROID [Concomitant]
     Active Substance: LEVOTHYROXINE SODIUM
  7. PROVIGIL [Concomitant]
     Active Substance: MODAFINIL
  8. XYREM [Suspect]
     Active Substance: SODIUM OXYBATE
     Indication: NARCOLEPSY
     Route: 048
     Dates: start: 200801
  9. VASOTEC (ENALAPRIL MALEATE) [Concomitant]
  10. METHOTREXATE [Concomitant]
     Active Substance: METHOTREXATE
  11. CALCIUM AND VIT D (CALCIUM, COLECALCIFEROL) [Concomitant]
  12. CLEOCIN PHOSPHATE (CLINDAMYCIN PHOSPHATE) [Concomitant]
  13. OMEPRAZOLE. [Concomitant]
     Active Substance: OMEPRAZOLE
  14. PREDNISONE. [Concomitant]
     Active Substance: PREDNISONE
  15. ZOCOR [Concomitant]
     Active Substance: SIMVASTATIN
  16. ECOTRIN [Concomitant]
     Active Substance: ASPIRIN
  17. PLAQUENIL (HYDROXYCHLOROQUINE SULFATE) [Concomitant]

REACTIONS (1)
  - Atrial fibrillation [None]
